FAERS Safety Report 7096280-7 (Version None)
Quarter: 2010Q4

REPORT INFORMATION
  Report Type: 
  Country: None (occurrence: None)
  Receive Date: 20101111
  Receipt Date: 20101108
  Transmission Date: 20110411
  Serious: Yes (Hospitalization)
  Sender: FDA-Public Use
  Company Number: AU-BRISTOL-MYERS SQUIBB COMPANY-15375710

PATIENT
  Age: 45 Year
  Sex: Female

DRUGS (1)
  1. ARIPIPRAZOLE IM DEPOT [Suspect]
     Indication: SCHIZOPHRENIA
     Route: 030
     Dates: start: 20100616

REACTIONS (2)
  - CONDITION AGGRAVATED [None]
  - SCHIZOPHRENIA [None]
